FAERS Safety Report 5886916-8 (Version None)
Quarter: 2008Q3

REPORT INFORMATION
  Report Type: 
  Country: None (occurrence: None)
  Receive Date: 20080917
  Receipt Date: 20080908
  Transmission Date: 20090109
  Serious: Yes (Other)
  Sender: FDA-Public Use
  Company Number: DE-GILEAD-2008-0018105

PATIENT
  Sex: Male

DRUGS (2)
  1. TRUVADA [Suspect]
  2. VIRAMUNE [Concomitant]

REACTIONS (1)
  - HAEMOGLOBIN DECREASED [None]
